FAERS Safety Report 23934415 (Version 1)
Quarter: 2024Q2

REPORT INFORMATION
  Report Type: Spontaneous
  Country: JP (occurrence: JP)
  Receive Date: 20240603
  Receipt Date: 20240603
  Transmission Date: 20240716
  Serious: Yes (Hospitalization, Other)
  Sender: FDA-Public Use
  Company Number: JP-ANIPHARMA-2024-JP-000143

PATIENT
  Age: 73 Year
  Sex: Female
  Weight: 45 kg

DRUGS (14)
  1. ANASTROZOLE [Suspect]
     Active Substance: ANASTROZOLE
     Indication: Breast cancer
     Dosage: 1 MG DAILY
     Route: 048
     Dates: start: 20231031, end: 20240421
  2. ONEALFA [Concomitant]
     Active Substance: ALFACALCIDOL
     Dates: start: 20231031
  3. NICOTINAMIDE [Concomitant]
     Active Substance: NIACINAMIDE
     Dates: start: 20231106
  4. PREDONINE [Concomitant]
     Active Substance: PREDNISOLONE
     Dates: start: 20231108
  5. EVENITY [Concomitant]
     Active Substance: ROMOSOZUMAB-AQQG
     Dates: start: 20231211
  6. PREDNISOLONE [Concomitant]
     Active Substance: PREDNISOLONE
     Dates: start: 20230325
  7. MINOCYCLINE HYDROCHLORIDE [Suspect]
     Active Substance: MINOCYCLINE HYDROCHLORIDE
     Route: 048
     Dates: start: 20231106, end: 20240421
  8. SULFAMETHOXAZOLE\TRIMETHOPRIM [Suspect]
     Active Substance: SULFAMETHOXAZOLE\TRIMETHOPRIM
     Dosage: 1 DF DAILY
     Route: 048
     Dates: start: 20231122, end: 20240421
  9. FLAGYL [Concomitant]
     Active Substance: METRONIDAZOLE\METRONIDAZOLE HYDROCHLORIDE
     Dates: start: 20231012
  10. WHITE PETROLATUM [Concomitant]
     Active Substance: PETROLATUM
     Dates: start: 20231012
  11. FEXOFENADINE HYDROCHLORIDE [Concomitant]
     Active Substance: FEXOFENADINE HYDROCHLORIDE
     Dates: start: 20231015
  12. DAYVIGO [Concomitant]
     Active Substance: LEMBOREXANT
     Dates: start: 20231017
  13. DIPHENHYDRAMINE [Concomitant]
     Active Substance: DIPHENHYDRAMINE
     Dates: start: 20231022
  14. MYSER [Concomitant]
     Dates: start: 20231023

REACTIONS (1)
  - Interstitial lung disease [Recovering/Resolving]

NARRATIVE: CASE EVENT DATE: 20240419
